FAERS Safety Report 9160059 (Version 3)
Quarter: 2013Q2

REPORT INFORMATION
  Report Type: Report from Study
  Country: US (occurrence: US)
  Receive Date: 20130313
  Receipt Date: 20130423
  Transmission Date: 20140414
  Serious: Yes (Hospitalization, Other)
  Sender: FDA-Public Use
  Company Number: PHEH2013US000695

PATIENT
  Age: 40 Year
  Sex: Female
  Weight: 56.69 kg

DRUGS (2)
  1. GILENYA [Suspect]
     Indication: MULTIPLE SCLEROSIS
     Dosage: 0.5 MG, QD
     Route: 048
     Dates: start: 20130103
  2. GILENYA [Suspect]
     Dosage: 0.5 MG, QOD
     Route: 048

REACTIONS (16)
  - Gait disturbance [Recovering/Resolving]
  - Ankylosing spondylitis [Not Recovered/Not Resolved]
  - Hallucination [Not Recovered/Not Resolved]
  - Dry eye [Not Recovered/Not Resolved]
  - Poor quality sleep [Not Recovered/Not Resolved]
  - Panic reaction [Not Recovered/Not Resolved]
  - Weight increased [Unknown]
  - Paraesthesia [Recovered/Resolved]
  - Back pain [Unknown]
  - White blood cell count decreased [Not Recovered/Not Resolved]
  - Oropharyngeal pain [Not Recovered/Not Resolved]
  - Cough [Not Recovered/Not Resolved]
  - Asthenia [Not Recovered/Not Resolved]
  - Dizziness [Not Recovered/Not Resolved]
  - Alopecia [Unknown]
  - Inappropriate schedule of drug administration [Unknown]
